FAERS Safety Report 7783929-6 (Version None)
Quarter: 2011Q3

REPORT INFORMATION
  Report Type: 
  Country: None (occurrence: None)
  Receive Date: 20110928
  Receipt Date: 20110916
  Transmission Date: 20111222
  Serious: Yes (Death, Hospitalization)
  Sender: FDA-Public Use
  Company Number: US-ACTELION-A-NJ2011-52521

PATIENT

DRUGS (1)
  1. TRACLEER [Suspect]
     Indication: PULMONARY ARTERIAL HYPERTENSION
     Dosage: UNK
     Route: 048
     Dates: start: 20050427, end: 20110916

REACTIONS (4)
  - METASTASES TO LUNG [None]
  - PAIN [None]
  - PANCREATIC CARCINOMA METASTATIC [None]
  - METASTASES TO LIVER [None]
